FAERS Safety Report 26043942 (Version 1)
Quarter: 2025Q4

REPORT INFORMATION
  Report Type: Spontaneous
  Country: EU (occurrence: EU)
  Receive Date: 20251114
  Receipt Date: 20251114
  Transmission Date: 20260118
  Serious: Yes (Death, Other)
  Sender: AUROBINDO
  Company Number: EU-AEMPS-1771300

PATIENT
  Age: 58 Year
  Sex: Male

DRUGS (3)
  1. BUPIVACAINE [Suspect]
     Active Substance: BUPIVACAINE
     Indication: Surgery
     Dosage: 12 MILLIGRAM (12.0 MG DU)
     Route: 008
     Dates: start: 20240621, end: 20240621
  2. Paracetamol tarbis farma [Concomitant]
     Indication: Arthralgia
     Dosage: 1000 MILLIGRAM (1000.0 MG DECOCE)
     Route: 048
     Dates: start: 20210512
  3. TRAMADOL HYDROCHLORIDE [Concomitant]
     Active Substance: TRAMADOL HYDROCHLORIDE
     Indication: Arthralgia
     Dosage: 50 MILLIGRAM, TWO TIMES A DAY (50.0 MG C/12 H)
     Route: 048
     Dates: start: 20210512

REACTIONS (1)
  - Pulseless electrical activity [Fatal]

NARRATIVE: CASE EVENT DATE: 20240621
